FAERS Safety Report 18404795 (Version 1)
Quarter: 2020Q4

REPORT INFORMATION
  Report Type: Spontaneous
  Country: US (occurrence: US)
  Receive Date: 20201020
  Receipt Date: 20201020
  Transmission Date: 20210114
  Serious: Yes (Death, Hospitalization)
  Sender: FDA-Public Use
  Company Number: None

PATIENT
  Age: 80 Year
  Sex: Male
  Weight: 87.4 kg

DRUGS (3)
  1. VELCADE [Suspect]
     Active Substance: BORTEZOMIB
     Dates: end: 20160608
  2. RITUXIMAB (MOAB C2B8 ANTI CD20, CHIMERIC) [Suspect]
     Active Substance: RITUXIMAB
     Dates: end: 20180409
  3. BENDAMUSTINE HYDROCHLORIDE. [Suspect]
     Active Substance: BENDAMUSTINE HYDROCHLORIDE
     Dates: end: 20160602

REACTIONS (13)
  - Liver function test abnormal [None]
  - Graft versus host disease [None]
  - Dyspnoea [None]
  - Respiratory failure [None]
  - Dermatitis [None]
  - Eosinophil count decreased [None]
  - Hypophagia [None]
  - Myelodysplastic syndrome [None]
  - Sepsis [None]
  - Drug eruption [None]
  - Complications of transplanted liver [None]
  - Rash [None]
  - Fatigue [None]

NARRATIVE: CASE EVENT DATE: 20201005
